FAERS Safety Report 12988069 (Version 1)
Quarter: 2016Q4

REPORT INFORMATION
  Report Type: Spontaneous
  Country: CN (occurrence: CN)
  Receive Date: 20161130
  Receipt Date: 20161130
  Transmission Date: 20170207
  Serious: Yes (Other)
  Sender: FDA-Public Use
  Company Number: CN-CELGENEUS-CHN-2016115372

PATIENT

DRUGS (1)
  1. ABRAXANE [Suspect]
     Active Substance: PACLITAXEL
     Indication: NON-SMALL CELL LUNG CANCER
     Route: 041

REACTIONS (8)
  - Myalgia [Unknown]
  - Neurotoxicity [Unknown]
  - Nausea [Unknown]
  - Vomiting [Unknown]
  - Neutropenia [Unknown]
  - Gastrointestinal disorder [Unknown]
  - Arthralgia [Unknown]
  - Alopecia [Unknown]
